FAERS Safety Report 19083785 (Version 9)
Quarter: 2021Q3

REPORT INFORMATION
  Report Type: Report from Study
  Country: AT (occurrence: AT)
  Receive Date: 20210401
  Receipt Date: 20210720
  Transmission Date: 20211014
  Serious: Yes (Hospitalization)
  Sender: FDA-Public Use
  Company Number: AT-ROCHE-2796999

PATIENT
  Age: 78 Year
  Sex: Male
  Weight: 85.7 kg

DRUGS (23)
  1. HYDAL RETARD [Concomitant]
     Active Substance: HYDROMORPHONE HYDROCHLORIDE
     Route: 048
     Dates: start: 20210219
  2. ATARAX [Concomitant]
     Active Substance: HYDROXYZINE HYDROCHLORIDE
     Route: 048
     Dates: start: 20210312, end: 20210322
  3. MOSUNETUZUMAB. [Suspect]
     Active Substance: MOSUNETUZUMAB
     Indication: B-CELL LYMPHOMA
     Dosage: START DATE OF MOST RECENT DOSE (2 MG) OF STUDY DRUG PRIOR TO SAE 17/MAR/2021?START DATE OF MOST RECE
     Route: 042
     Dates: start: 20210310
  4. UROSIN (AUSTRIA) [Concomitant]
     Route: 048
     Dates: start: 201709
  5. PREDNISOLON [Concomitant]
     Active Substance: PREDNISOLONE
  6. CYCLOPHOSPHAMIDE. [Suspect]
     Active Substance: CYCLOPHOSPHAMIDE
     Indication: B-CELL LYMPHOMA
     Dosage: DATE OF MOST RECENT DOSE OF STUDY DRUG PRIOR TO SAE: 10/MAR/2021 (750 MG)?DATE OF MOST RECENT DOSE O
     Route: 042
     Dates: start: 20210310
  7. PASPERTIN [Concomitant]
     Route: 048
     Dates: start: 20210220, end: 20210322
  8. METAMIZOL [Concomitant]
     Active Substance: METAMIZOLE SODIUM
     Route: 042
     Dates: start: 20210219, end: 20210304
  9. LYRICA [Concomitant]
     Active Substance: PREGABALIN
     Route: 048
     Dates: start: 20200220, end: 20210601
  10. POLATUZUMAB VEDOTIN. [Suspect]
     Active Substance: POLATUZUMAB VEDOTIN
     Indication: B-CELL LYMPHOMA
     Dosage: DATE OF MOST RECENT DOSE OF STUDY DRUG PRIOR TO SAE: 17/MAR/2021 (1.8 MG)?DATE OF MOST RECENT DOSE O
     Route: 042
     Dates: start: 20210310
  11. DOXORUBICIN [Suspect]
     Active Substance: DOXORUBICIN
     Indication: B-CELL LYMPHOMA
     Dosage: DATE OF MOST RECENT DOSE OF STUDY DRUG PRIOR TO SAE: 10/MAR/2021 (50 MG)?DATE OF MOST RECENT DOSE OF
     Route: 042
     Dates: start: 20210310
  12. TAMSULOSIN [Concomitant]
     Active Substance: TAMSULOSIN
     Route: 048
     Dates: start: 202007
  13. THROMBO ASS [Concomitant]
     Active Substance: ASPIRIN
     Route: 048
     Dates: start: 201909
  14. XEFO [Concomitant]
     Active Substance: LORNOXICAM
     Route: 048
     Dates: start: 20210220, end: 20210226
  15. ONDANSAN [Concomitant]
     Active Substance: ONDANSETRON HYDROCHLORIDE
     Route: 048
     Dates: start: 20210312, end: 20210322
  16. ATORVASTATIN [Concomitant]
     Active Substance: ATORVASTATIN
     Route: 048
     Dates: start: 202007
  17. SERTRALIN [Concomitant]
     Active Substance: SERTRALINE HYDROCHLORIDE
     Route: 048
     Dates: start: 20210312
  18. METAMIZOL [Concomitant]
     Active Substance: METAMIZOLE SODIUM
     Route: 048
     Dates: start: 20210305, end: 20210322
  19. RETACRIT [Concomitant]
     Active Substance: EPOETIN ALFA-EPBX
     Route: 058
     Dates: start: 20210429
  20. PREDNISONE. [Suspect]
     Active Substance: PREDNISONE
     Indication: B-CELL LYMPHOMA
     Dosage: DATE OF MOST RECENT DOSE OF STUDY DRUG PRIOR TO SAE: 14/MAR/2021 (100 MG)?DATE OF MOST RECENT DOSE O
     Route: 048
     Dates: start: 20210310
  21. AMLODIPIN [Concomitant]
     Active Substance: AMLODIPINE BESYLATE
     Route: 048
     Dates: start: 202007, end: 20210331
  22. MOLAXOLE [Concomitant]
     Active Substance: POLYETHYLENE GLYCOL 3350\POTASSIUM CHLORIDE\SODIUM BICARBONATE\SODIUM CHLORIDE
     Dosage: DOSE: 1 OTHER
     Route: 048
     Dates: start: 202007
  23. PANTIP [Concomitant]
     Active Substance: PANTOPRAZOLE SODIUM
     Route: 048
     Dates: start: 20210312

REACTIONS (3)
  - Febrile neutropenia [Recovered/Resolved]
  - Infection [Recovered/Resolved]
  - Neutropenia [Recovered/Resolved]

NARRATIVE: CASE EVENT DATE: 20210317
